FAERS Safety Report 20703610 (Version 2)
Quarter: 2022Q2

REPORT INFORMATION
  Report Type: Report from Study
  Country: GR (occurrence: GR)
  Receive Date: 20220413
  Receipt Date: 20220418
  Transmission Date: 20220721
  Serious: Yes (Life-Threatening, Hospitalization, Other)
  Sender: FDA-Public Use
  Company Number: GR-CLOVIS ONCOLOGY-CLO-2022-000452

PATIENT

DRUGS (6)
  1. RUCAPARIB [Suspect]
     Active Substance: RUCAPARIB
     Indication: Ovarian cancer
     Dosage: 600 MILLIGRAM, BID
     Route: 048
     Dates: start: 20200115
  2. RUCAPARIB [Suspect]
     Active Substance: RUCAPARIB
     Dosage: 600 MILLIGRAM, BID
     Route: 048
     Dates: end: 20211114
  3. NIVOLUMAB [Suspect]
     Active Substance: NIVOLUMAB
     Indication: Ovarian cancer
     Dosage: UNK, Q4W
     Route: 042
     Dates: start: 20200212
  4. NIVOLUMAB [Suspect]
     Active Substance: NIVOLUMAB
     Dosage: UNK, Q4W
     Route: 042
     Dates: end: 20220117
  5. LEVOTHYROXINE [Concomitant]
     Active Substance: LEVOTHYROXINE
     Indication: Hypothyroidism
     Dosage: UNK
     Dates: start: 2007
  6. FENOCLOF [Concomitant]
     Indication: Osteoarthritis
     Dosage: UNK
     Dates: start: 2018

REACTIONS (1)
  - Acute myeloid leukaemia [Not Recovered/Not Resolved]

NARRATIVE: CASE EVENT DATE: 20220408
